FAERS Safety Report 12516045 (Version 1)
Quarter: 2016Q2

REPORT INFORMATION
  Report Type: Spontaneous
  Country: FR (occurrence: FR)
  Receive Date: 20160630
  Receipt Date: 20160630
  Transmission Date: 20160815
  Serious: Yes (Hospitalization)
  Sender: FDA-Public Use
  Company Number: FR-MYLANLABS-2016M1026785

PATIENT

DRUGS (20)
  1. PANTOPRAZOLE SODIUM. [Suspect]
     Active Substance: PANTOPRAZOLE SODIUM
     Indication: PRODUCT USED FOR UNKNOWN INDICATION
     Dosage: UNK
     Route: 048
     Dates: start: 20160314, end: 20160322
  2. INEXIUM                            /01479302/ [Concomitant]
     Active Substance: ESOMEPRAZOLE MAGNESIUM
     Indication: PRODUCT USED FOR UNKNOWN INDICATION
     Dosage: 40 MG, QD
     Dates: start: 20160306
  3. LASILIX                            /00032601/ [Suspect]
     Active Substance: FUROSEMIDE
     Indication: PRODUCT USED FOR UNKNOWN INDICATION
     Dosage: 250 MG, QD
     Route: 048
     Dates: start: 20160305, end: 20160322
  4. GENTAMICINE                        /00047101/ [Concomitant]
     Active Substance: GENTAMICIN
     Indication: PRODUCT USED FOR UNKNOWN INDICATION
     Dosage: 3 MG/KG, QD
     Dates: start: 20160302, end: 20160307
  5. METHADONE AP HP [Concomitant]
     Active Substance: METHADONE HYDROCHLORIDE
     Indication: PRODUCT USED FOR UNKNOWN INDICATION
     Dosage: 80 MG, QD
  6. BEVITINE [Concomitant]
     Active Substance: THIAMINE
     Indication: PRODUCT USED FOR UNKNOWN INDICATION
  7. HEPARIN [Concomitant]
     Active Substance: HEPARIN SODIUM
     Indication: PRODUCT USED FOR UNKNOWN INDICATION
     Dosage: 5000 IU, BID
     Dates: start: 20160305
  8. ORBENINE [Suspect]
     Active Substance: CLOXACILLIN SODIUM
     Indication: PRODUCT USED FOR UNKNOWN INDICATION
     Dosage: 2 G, Q4H
     Route: 042
     Dates: start: 20160302, end: 20160315
  9. OFLOCET                            /00731801/ [Concomitant]
     Active Substance: OFLOXACIN
     Indication: PRODUCT USED FOR UNKNOWN INDICATION
     Dosage: 200 MG, TID
     Dates: start: 20160307
  10. HYPNOVEL                           /00634101/ [Concomitant]
     Active Substance: MIDAZOLAM\MIDAZOLAM HYDROCHLORIDE
     Indication: SEDATION
     Dosage: UNK
     Dates: start: 20160305, end: 20160313
  11. SUFENTANIL [Concomitant]
     Active Substance: SUFENTANIL
     Indication: SEDATION
     Dosage: UNK
     Dates: start: 20160305, end: 20160313
  12. METHADONE AP HP [Concomitant]
     Active Substance: METHADONE HYDROCHLORIDE
     Dosage: 80 MG, QD
     Dates: start: 20160310, end: 20160312
  13. TRAMADOL. [Suspect]
     Active Substance: TRAMADOL
     Indication: PRODUCT USED FOR UNKNOWN INDICATION
     Dosage: 1 DF, BID
     Route: 048
     Dates: start: 20160318, end: 20160322
  14. HEPARINE SODIUM PANPHARMA [Concomitant]
     Active Substance: HEPARIN SODIUM
     Indication: PRODUCT USED FOR UNKNOWN INDICATION
     Route: 042
  15. CEFAZOLINE MYLAN 2 G POUDRE POUR SOLUTION INJECTABLE OU POUR PERFUSION [Suspect]
     Active Substance: CEFAZOLIN SODIUM
     Indication: ENDOCARDITIS STAPHYLOCOCCAL
     Dosage: 2 G, TID
     Route: 042
     Dates: start: 20160315, end: 20160322
  16. SERESTA [Suspect]
     Active Substance: OXAZEPAM
     Indication: PRODUCT USED FOR UNKNOWN INDICATION
     Dosage: 10 MG, TID
     Route: 048
     Dates: start: 20160313, end: 20160322
  17. METHADONE AP HP [Concomitant]
     Active Substance: METHADONE HYDROCHLORIDE
     Dosage: 40 MG, QD
     Dates: start: 20160314
  18. BECILAN [Concomitant]
     Active Substance: PYRIDOXINE
     Indication: PRODUCT USED FOR UNKNOWN INDICATION
     Dosage: UNK
     Dates: start: 20160303
  19. LOVENOX [Concomitant]
     Active Substance: ENOXAPARIN SODIUM
     Indication: PRODUCT USED FOR UNKNOWN INDICATION
     Dosage: 4000 IU, QD
     Dates: end: 20160305
  20. INEXIUM                            /01479302/ [Concomitant]
     Active Substance: ESOMEPRAZOLE MAGNESIUM
     Dosage: UNK
     Dates: start: 20160314, end: 20160322

REACTIONS (6)
  - Lung abscess [None]
  - Neutropenia [None]
  - Acute kidney injury [None]
  - Cardiac failure [None]
  - Respiratory distress [None]
  - Agranulocytosis [Recovered/Resolved]

NARRATIVE: CASE EVENT DATE: 20160321
